FAERS Safety Report 6971136-6 (Version None)
Quarter: 2010Q3

REPORT INFORMATION
  Report Type: 
  Country: None (occurrence: None)
  Receive Date: 20100908
  Receipt Date: 20100830
  Transmission Date: 20110219
  Serious: Yes (Life-Threatening, Hospitalization)
  Sender: FDA-Public Use
  Company Number: FR-JNJFOC-20100702951

PATIENT
  Sex: Male
  Weight: 62 kg

DRUGS (12)
  1. PREZISTA [Suspect]
     Indication: HIV INFECTION
     Route: 048
  2. RITONAVIR [Suspect]
     Indication: HIV INFECTION
     Route: 048
  3. TRUVADA [Suspect]
     Indication: HIV INFECTION
     Route: 048
  4. TRUVADA [Suspect]
     Dosage: TRUVADA* : 200/245
     Route: 048
  5. BACTRIM [Concomitant]
     Indication: PROPHYLAXIS
     Route: 048
  6. AZADOSE [Concomitant]
  7. HYDROCORTISONE [Concomitant]
  8. LEVOTHYROXINE SODIUM [Concomitant]
  9. ACETAMINOPHEN [Concomitant]
  10. LEXOMIL [Concomitant]
  11. CLAFORAN [Concomitant]
     Indication: SYPHILIS
     Route: 065
  12. TOPALGIC [Concomitant]

REACTIONS (3)
  - CHRONIC HEPATIC FAILURE [None]
  - CYTOLYTIC HEPATITIS [None]
  - HEPATITIS CHOLESTATIC [None]
